FAERS Safety Report 6522097-5 (Version None)
Quarter: 2009Q4

REPORT INFORMATION
  Report Type: 
  Country: None (occurrence: None)
  Receive Date: 20091222
  Receipt Date: 20091215
  Transmission Date: 20100525
  Serious: Yes (Other)
  Sender: FDA-Public Use
  Company Number: 09-001967

PATIENT
  Age: 15 Year
  Sex: Male
  Weight: 60.3 kg

DRUGS (1)
  1. DORYX [Suspect]
     Indication: ACNE
     Dosage: 150 MG, SINGLE
     Dates: start: 20091204, end: 20091204

REACTIONS (4)
  - ABASIA [None]
  - ABDOMINAL PAIN [None]
  - ASPARTATE AMINOTRANSFERASE INCREASED [None]
  - HEPATOTOXICITY [None]
